FAERS Safety Report 6579523-5 (Version None)
Quarter: 2010Q1

REPORT INFORMATION
  Report Type: 
  Country: None (occurrence: None)
  Receive Date: 20100209
  Receipt Date: 20100209
  Transmission Date: 20100710
  Serious: Yes (Life-Threatening, Other)
  Sender: FDA-Public Use
  Company Number: None

PATIENT
  Age: 4 Year
  Sex: Male
  Weight: 21.7727 kg

DRUGS (1)
  1. AZASITE [Suspect]
     Indication: HORDEOLUM
     Dosage: 2 DROPS FIRST 2 DAYS OPHTHALMIC
     Route: 047
     Dates: start: 20100203, end: 20100204

REACTIONS (2)
  - DIARRHOEA [None]
  - VOMITING [None]
